FAERS Safety Report 13179615 (Version 2)
Quarter: 2017Q1

REPORT INFORMATION
  Report Type: Spontaneous
  Country: US (occurrence: US)
  Receive Date: 20170202
  Receipt Date: 20170210
  Transmission Date: 20170428
  Serious: No
  Sender: FDA-Public Use
  Company Number: US-PFIZER INC-2017041407

PATIENT
  Age: 38 Year
  Sex: Female

DRUGS (2)
  1. DILANTIN [Suspect]
     Active Substance: PHENYTOIN
     Indication: SEIZURE
     Dosage: UNK
  2. XELJANZ [Suspect]
     Active Substance: TOFACITINIB CITRATE
     Dosage: UNK

REACTIONS (7)
  - Malaise [Unknown]
  - Fatigue [Unknown]
  - Chest pain [Unknown]
  - Abdominal discomfort [Unknown]
  - Nasal congestion [Unknown]
  - Headache [Unknown]
  - Lethargy [Unknown]
